FAERS Safety Report 17273431 (Version 5)
Quarter: 2020Q2

REPORT INFORMATION
  Report Type: Report from Study
  Country: None (occurrence: US)
  Receive Date: 20200115
  Receipt Date: 20200630
  Transmission Date: 20200713
  Serious: Yes (Hospitalization, Other)
  Sender: FDA-Public Use
  Company Number: US-ABBVIE-20P-163-3230707-00

PATIENT
  Age: 64 Year
  Sex: Male

DRUGS (5)
  1. IMBRUVICA [Suspect]
     Active Substance: IBRUTINIB
     Indication: CHRONIC LYMPHOCYTIC LEUKAEMIA
     Route: 048
     Dates: start: 20191001, end: 201910
  2. IMBRUVICA [Suspect]
     Active Substance: IBRUTINIB
     Route: 048
     Dates: start: 20191001
  3. IMBRUVICA [Suspect]
     Active Substance: IBRUTINIB
     Route: 048
     Dates: start: 20190917
  4. IMBRUVICA [Suspect]
     Active Substance: IBRUTINIB
     Route: 048
     Dates: start: 201909
  5. IMBRUVICA [Suspect]
     Active Substance: IBRUTINIB
     Route: 048

REACTIONS (15)
  - Joint swelling [Unknown]
  - Pain in extremity [Unknown]
  - Neutrophil count decreased [Unknown]
  - Lower limb fracture [Unknown]
  - White blood cell count increased [Recovering/Resolving]
  - Blood pressure increased [Unknown]
  - Stenosis [Unknown]
  - Myalgia [Unknown]
  - Lymphocyte count increased [Unknown]
  - Spinal operation [Unknown]
  - Back pain [Unknown]
  - White blood cell count decreased [Recovered/Resolved]
  - Anxiety [Unknown]
  - Knee operation [Unknown]
  - Dental operation [Recovering/Resolving]

NARRATIVE: CASE EVENT DATE: 2019
